FAERS Safety Report 9358019 (Version 2)
Quarter: 2013Q3

REPORT INFORMATION
  Report Type: Spontaneous
  Country: US (occurrence: US)
  Receive Date: 20130620
  Receipt Date: 20130722
  Transmission Date: 20140515
  Serious: No
  Sender: FDA-Public Use
  Company Number: US-009507513-1306USA004375

PATIENT
  Age: 33 Year
  Sex: Male

DRUGS (2)
  1. NASONEX [Suspect]
     Indication: SINUSITIS
     Dosage: 1 SPRAY IN EACH NOSTRIL ONCE A DAY
     Route: 045
     Dates: start: 201106
  2. NASONEX [Suspect]
     Indication: HYPERSENSITIVITY

REACTIONS (3)
  - Oropharyngeal pain [Unknown]
  - Drug dose omission [Unknown]
  - Product quality issue [Unknown]
